FAERS Safety Report 6015204-4 (Version None)
Quarter: 2008Q4

REPORT INFORMATION
  Report Type: 
  Country: None (occurrence: None)
  Receive Date: 20081222
  Receipt Date: 20081211
  Transmission Date: 20090506
  Serious: Yes (Hospitalization, Disabling, Congenital Anomaly)
  Sender: FDA-Public Use
  Company Number: CH-BAXTER-ONC000813

PATIENT
  Age: 0 Year
  Sex: Male
  Weight: 2 kg

DRUGS (10)
  1. ENDOXAN BAXTER [Suspect]
     Indication: ALLERGIC GRANULOMATOUS ANGIITIS
     Route: 064
     Dates: start: 20040108, end: 20040108
  2. ENDOXAN BAXTER [Suspect]
     Indication: VASCULITIS CEREBRAL
     Route: 064
     Dates: start: 20040108, end: 20040108
  3. DEPAKENE [Suspect]
     Indication: EPILEPSY
     Route: 064
     Dates: start: 20030901, end: 20040914
  4. XANAX [Suspect]
     Indication: ANXIETY
     Route: 064
     Dates: start: 20030901, end: 20040914
  5. SANDIMMUNE [Concomitant]
     Route: 064
     Dates: start: 20040310, end: 20040914
  6. PREDNISONE [Concomitant]
     Indication: ASTHMA
     Route: 064
     Dates: start: 20040107, end: 20040914
  7. OMEPRAZOLE MAGNESIUM [Concomitant]
     Route: 064
     Dates: start: 20040107, end: 20040914
  8. TAVANIC [Concomitant]
     Indication: BRONCHITIS
     Route: 064
     Dates: start: 20040202, end: 20040204
  9. SEREVENT [Concomitant]
     Indication: ASTHMA
     Route: 064
  10. SERETIDE DISKUS [Concomitant]
     Route: 064

REACTIONS (7)
  - CONGENITAL FOOT MALFORMATION [None]
  - DRUG EXPOSURE DURING PREGNANCY [None]
  - FOETAL GROWTH RETARDATION [None]
  - HYPOGLYCAEMIA [None]
  - NEONATAL DISORDER [None]
  - RESPIRATORY DISTRESS [None]
  - SYNDACTYLY [None]
